FAERS Safety Report 10046716 (Version 1)
Quarter: 2014Q1

REPORT INFORMATION
  Report Type: Spontaneous
  Country: SE (occurrence: SE)
  Receive Date: 20140331
  Receipt Date: 20140331
  Transmission Date: 20141002
  Serious: Yes (Hospitalization)
  Sender: FDA-Public Use
  Company Number: SE-009507513-1403SWE010687

PATIENT
  Age: 62 Year
  Sex: Female

DRUGS (1)
  1. FOSAMAX VECKOTABLETT 70 MG TABLETTER [Suspect]
     Route: 048

REACTIONS (1)
  - Femur fracture [Unknown]
